FAERS Safety Report 9777640 (Version 1)
Quarter: 2013Q4

REPORT INFORMATION
  Report Type: Report from Study
  Country: CA (occurrence: CA)
  Receive Date: 20131223
  Receipt Date: 20131223
  Transmission Date: 20140711
  Serious: Yes (Other)
  Sender: FDA-Public Use
  Company Number: CA-ROCHE-1321739

PATIENT
  Age: 62 Year
  Sex: Male

DRUGS (9)
  1. PEGASYS [Suspect]
     Indication: CRYOGLOBULINAEMIA
     Dosage: 0.5ML PRE FILLED SYRINGE
     Route: 058
     Dates: start: 20131112, end: 20131216
  2. PEGASYS [Suspect]
     Indication: NEPHROPATHY
  3. COPEGUS [Suspect]
     Indication: CRYOGLOBULINAEMIA
     Dosage: 42 TABLET/WEEK
     Route: 048
     Dates: start: 20131112, end: 20131216
  4. COPEGUS [Suspect]
     Indication: NEPHROPATHY
  5. ARANESP [Concomitant]
     Indication: ANAEMIA
  6. BISOPROLOL [Concomitant]
     Indication: HYPERTENSION
  7. AMLODIPIN [Concomitant]
     Indication: HYPERTENSION
  8. NEORAL [Concomitant]
     Indication: IMMUNOSUPPRESSION
  9. MYFORTIC [Concomitant]
     Indication: IMMUNOSUPPRESSION

REACTIONS (4)
  - Blood creatinine increased [Not Recovered/Not Resolved]
  - Diarrhoea [Recovering/Resolving]
  - Asthenia [Not Recovered/Not Resolved]
  - Off label use [Unknown]
